FAERS Safety Report 12888296 (Version 2)
Quarter: 2016Q4

REPORT INFORMATION
  Report Type: Spontaneous
  Country: GB (occurrence: GB)
  Receive Date: 20161027
  Receipt Date: 20161118
  Transmission Date: 20170207
  Serious: Yes (Life-Threatening, Hospitalization)
  Sender: FDA-Public Use
  Company Number: GB-SUN PHARMACEUTICAL INDUSTRIES LTD-2016RR-126282

PATIENT
  Age: 39 Year
  Sex: Male

DRUGS (3)
  1. RISPERIDONE. [Suspect]
     Active Substance: RISPERIDONE
     Indication: INTENTIONAL OVERDOSE
     Dosage: 41 DF, UNK
     Route: 048
     Dates: start: 20161003
  2. STEINHARD CHLORPOMAZINE [Suspect]
     Active Substance: CHLORPROMAZINE HYDROCHLORIDE
     Indication: INTENTIONAL OVERDOSE
     Dosage: 41 DF, UNK
     Route: 048
     Dates: start: 20161003
  3. PARACETAMOL [Suspect]
     Active Substance: ACETAMINOPHEN
     Indication: INTENTIONAL OVERDOSE
     Dosage: 24 DF, UNK
     Route: 048
     Dates: start: 20161003

REACTIONS (2)
  - Haematemesis [Recovering/Resolving]
  - Seizure [Recovering/Resolving]

NARRATIVE: CASE EVENT DATE: 20161003
